FAERS Safety Report 8107470-6 (Version None)
Quarter: 2012Q1

REPORT INFORMATION
  Report Type: 
  Country: None (occurrence: None)
  Receive Date: 20120202
  Receipt Date: 20120124
  Transmission Date: 20120608
  Serious: Yes (Other)
  Sender: FDA-Public Use
  Company Number: JP-SANOFI-AVENTIS-2012SA005881

PATIENT

DRUGS (2)
  1. SOLOSTAR [Suspect]
     Indication: DEVICE THERAPY
  2. LANTUS [Suspect]
     Route: 065

REACTIONS (3)
  - DIABETIC KETOACIDOSIS [None]
  - URINE KETONE BODY PRESENT [None]
  - DRUG INEFFECTIVE [None]
